FAERS Safety Report 21778833 (Version 1)
Quarter: 2022Q4

REPORT INFORMATION
  Report Type: Spontaneous
  Country: PA (occurrence: PA)
  Receive Date: 20221226
  Receipt Date: 20221226
  Transmission Date: 20230113
  Serious: Yes (Other)
  Sender: FDA-Public Use
  Company Number: PA-PFIZER INC-PV202200124322

PATIENT
  Age: 61 Year
  Sex: Female

DRUGS (1)
  1. ENBREL [Suspect]
     Active Substance: ETANERCEPT
     Indication: Product used for unknown indication
     Dosage: 50 MILLILITER, QWK  (EVERY 8 DAYS)
     Route: 065
     Dates: start: 2015

REACTIONS (7)
  - Foot operation [Unknown]
  - Limb operation [Unknown]
  - Off label use [Unknown]
  - Nasopharyngitis [Unknown]
  - Cough [Unknown]
  - Arthralgia [Unknown]
  - Pain in extremity [Unknown]
